FAERS Safety Report 24075568 (Version 1)
Quarter: 2024Q3

REPORT INFORMATION
  Report Type: Spontaneous
  Country: US (occurrence: US)
  Receive Date: 20240710
  Receipt Date: 20240710
  Transmission Date: 20241016
  Serious: No
  Sender: MISSION
  Company Number: US-Mission Pharmacal Company-2159018

PATIENT
  Age: 33 Year
  Sex: Female

DRUGS (8)
  1. THIOLA EC [Suspect]
     Active Substance: TIOPRONIN
     Indication: Ureterolithiasis
     Route: 048
     Dates: start: 20191004
  2. DAYVIGO [Concomitant]
     Active Substance: LEMBOREXANT
  3. ERGOCALCIFEROL [Concomitant]
     Active Substance: ERGOCALCIFEROL
  4. SUMATRIPTAN SUCCINATE [Concomitant]
     Active Substance: SUMATRIPTAN SUCCINATE
  5. QUETIAPINE FUMARATE [Concomitant]
     Active Substance: QUETIAPINE FUMARATE
  6. PROMETHAZINE HYDROCHLORIDE [Concomitant]
     Active Substance: PROMETHAZINE HYDROCHLORIDE
  7. MUCINEX [Concomitant]
     Active Substance: GUAIFENESIN
  8. CLARITIN [Concomitant]
     Active Substance: LORATADINE

REACTIONS (3)
  - Drug ineffective [Unknown]
  - Insomnia [Recovered/Resolved]
  - Dehydration [Unknown]
